FAERS Safety Report 5242081-1 (Version None)
Quarter: 2007Q1

REPORT INFORMATION
  Report Type: 
  Country: None (occurrence: None)
  Receive Date: 20070212
  Receipt Date: 20070201
  Transmission Date: 20070707
  Serious: Yes (Death)
  Sender: FDA-Public Use
  Company Number: 2007-00533

PATIENT
  Age: 16 Year
  Sex: 0

DRUGS (3)
  1. IBUPROFEN [Suspect]
  2. CHLORDIAZEPOXIDE/AMITRIPTYLIN HCL (UNKNOWN STRENGTH) (WATSON) (CHLORDI [Suspect]
  3. BUPROPION HCL [Suspect]

REACTIONS (1)
  - DEATH [None]
